FAERS Safety Report 15885241 (Version 1)
Quarter: 2019Q1

REPORT INFORMATION
  Report Type: Report from Study
  Country: IT (occurrence: IT)
  Receive Date: 20190129
  Receipt Date: 20190129
  Transmission Date: 20190417
  Serious: Yes (Other)
  Sender: FDA-Public Use
  Company Number: IT-MYLANLABS-2019M1007518

PATIENT
  Sex: Female

DRUGS (4)
  1. FOLINIC ACID [Suspect]
     Active Substance: LEUCOVORIN
     Indication: OVARIAN EPITHELIAL CANCER
     Dosage: 2 HOUR INFUSION ON DAY 1; EVERY THREE WEEKS
     Route: 050
  2. FLUOROURACIL. [Suspect]
     Active Substance: FLUOROURACIL
     Indication: OVARIAN EPITHELIAL CANCER
     Dosage: BOLUS ON DAY 1; EVERY THREE WEEKS
     Route: 050
  3. OXALIPLATIN. [Suspect]
     Active Substance: OXALIPLATIN
     Indication: OVARIAN EPITHELIAL CANCER
     Dosage: 2 HOUR INFUSION ON DAY 1; EVERY THREE WEEKS
     Route: 050
  4. FLUOROURACIL. [Suspect]
     Active Substance: FLUOROURACIL
     Dosage: 22 HOUR INFUSION FOR TWO CONSECUTIVE DAYS; EVERY THREE WEEKS
     Route: 050

REACTIONS (1)
  - Neurotoxicity [Unknown]
